FAERS Safety Report 13793876 (Version 1)
Quarter: 2017Q3

REPORT INFORMATION
  Report Type: Spontaneous
  Country: US (occurrence: US)
  Receive Date: 20170726
  Receipt Date: 20170726
  Transmission Date: 20171127
  Serious: Yes (Hospitalization)
  Sender: FDA-Public Use
  Company Number: None

PATIENT
  Age: 60 Year
  Sex: Male
  Weight: 106.69 kg

DRUGS (2)
  1. LEVOTHYROXINE. [Suspect]
     Active Substance: LEVOTHYROXINE
     Indication: HYPOTHYROIDISM
     Dosage: 100MCG 1 TABLET 1 TAB EACH MORNING ON EMPTY MOUTH
     Route: 048
     Dates: start: 20170704, end: 20170708
  2. LOSORTON-HCTZ [Concomitant]

REACTIONS (2)
  - Epistaxis [None]
  - Hypertension [None]

NARRATIVE: CASE EVENT DATE: 20170704
